FAERS Safety Report 24397503 (Version 1)
Quarter: 2024Q4

REPORT INFORMATION
  Report Type: Spontaneous
  Country: BR (occurrence: BR)
  Receive Date: 20241004
  Receipt Date: 20241004
  Transmission Date: 20250115
  Serious: Yes (Other)
  Sender: TORRENT
  Company Number: BR-TORRENT-00006272

PATIENT
  Age: 64 Year
  Sex: Male
  Weight: 78 kg

DRUGS (3)
  1. LEVETIRACETAM [Suspect]
     Active Substance: LEVETIRACETAM
     Indication: Epilepsy
     Dosage: 3 TIMES PER DAY, THERAPY ONGOING
     Route: 048
     Dates: start: 202402
  2. CLOBAZAM [Concomitant]
     Active Substance: CLOBAZAM
     Indication: Epilepsy
     Dosage: STRENGTH: 20 MG, 1 TABLET AT NIGHT
     Route: 065
  3. PHENYTOIN SODIUM [Concomitant]
     Active Substance: PHENYTOIN SODIUM
     Indication: Epilepsy
     Dosage: STRENGTH: 100 MG, 3 TIMES PER DAY
     Route: 065
     Dates: start: 2010

REACTIONS (5)
  - Anxiety [Not Recovered/Not Resolved]
  - Angina pectoris [Not Recovered/Not Resolved]
  - Off label use [Unknown]
  - Nervousness [Not Recovered/Not Resolved]
  - Heart rate irregular [Not Recovered/Not Resolved]

NARRATIVE: CASE EVENT DATE: 20240201
